FAERS Safety Report 5030861-7 (Version None)
Quarter: 2006Q2

REPORT INFORMATION
  Report Type: 
  Country: None (occurrence: None)
  Receive Date: 20060621
  Receipt Date: 20060609
  Transmission Date: 20061013
  Serious: Yes (Congenital Anomaly, Other)
  Sender: FDA-Public Use
  Company Number: US-JNJFOC-20060602376

PATIENT
  Sex: Female

DRUGS (5)
  1. REMICADE [Suspect]
     Indication: DRUG EXPOSURE DURING PREGNANCY
  2. PAXIL [Concomitant]
  3. SEASONALE [Concomitant]
  4. SEASONALE [Concomitant]
  5. FLONASE [Concomitant]

REACTIONS (1)
  - POLYDACTYLY [None]
